FAERS Safety Report 21710541 (Version 1)
Quarter: 2022Q4

REPORT INFORMATION
  Report Type: Report from Study
  Country: US (occurrence: US)
  Receive Date: 20221212
  Receipt Date: 20221212
  Transmission Date: 20230113
  Serious: No
  Sender: FDA-Public Use
  Company Number: US-ABBVIE-4185657

PATIENT
  Sex: Female

DRUGS (6)
  1. HUMIRA [Suspect]
     Active Substance: ADALIMUMAB
     Indication: Rheumatoid arthritis
     Route: 058
  2. Pfizer/BioNtech COVID19 vaccine [Concomitant]
     Indication: COVID-19 immunisation
     Dosage: 1ST DOSE
     Route: 030
  3. Pfizer/BioNtech COVID19 vaccine [Concomitant]
     Indication: COVID-19 immunisation
     Dosage: 2ND DOSE
     Route: 030
  4. Pfizer/BioNtech COVID19 vaccine [Concomitant]
     Indication: COVID-19 immunisation
     Dosage: 3RD DOSE
     Route: 030
  5. MIRALAX [Concomitant]
     Active Substance: POLYETHYLENE GLYCOL 3350
     Indication: Product used for unknown indication
  6. MELOXICAM [Suspect]
     Active Substance: MELOXICAM
     Indication: Product used for unknown indication
     Route: 065

REACTIONS (1)
  - Constipation [Unknown]
